FAERS Safety Report 10069899 (Version 2)
Quarter: 2014Q2

REPORT INFORMATION
  Report Type: Spontaneous
  Country: PT (occurrence: PT)
  Receive Date: 20140410
  Receipt Date: 20140512
  Transmission Date: 20141212
  Serious: Yes (Other)
  Sender: FDA-Public Use
  Company Number: PT-JNJFOC-20140403799

PATIENT
  Sex: Female

DRUGS (4)
  1. PREZISTA [Suspect]
     Indication: HIV INFECTION
     Route: 048
  2. TRUVADA [Suspect]
     Indication: HIV INFECTION
     Route: 065
     Dates: start: 2014
  3. RIFABUTINE [Concomitant]
     Route: 065
  4. PYRAZINAMIDE [Concomitant]
     Indication: TUBERCULOSIS
     Route: 065

REACTIONS (2)
  - Pancytopenia [Recovered/Resolved]
  - Liver disorder [Unknown]
